FAERS Safety Report 4435050-2 (Version None)
Quarter: 2004Q3

REPORT INFORMATION
  Report Type: 
  Country: None (occurrence: None)
  Receive Date: 20040826
  Receipt Date: 20040826
  Transmission Date: 20050211
  Serious: Yes (Other)
  Sender: FDA-Public Use
  Company Number: None

PATIENT
  Sex: Male
  Weight: 70.3075 kg

DRUGS (1)
  1. RISPERDAL [Suspect]
     Dosage: 2 MG Q AM, 2 MG Q PM
     Dates: start: 20040808, end: 20040816

REACTIONS (3)
  - EXTRAPYRAMIDAL DISORDER [None]
  - TONGUE DISORDER [None]
  - TREMOR [None]
